FAERS Safety Report 20686752 (Version 2)
Quarter: 2022Q2

REPORT INFORMATION
  Report Type: Spontaneous
  Country: US (occurrence: US)
  Receive Date: 20220407
  Receipt Date: 20220523
  Transmission Date: 20220720
  Serious: No
  Sender: FDA-Public Use
  Company Number: US-SA-SAC20220406001214

PATIENT
  Age: 49 Year
  Sex: Male
  Weight: 52 kg

DRUGS (21)
  1. DUPIXENT [Suspect]
     Active Substance: DUPILUMAB
     Indication: Dermatitis atopic
     Dosage: 300 MG, QOW
     Route: 058
     Dates: start: 202009
  2. OMEPRAZOLE [Concomitant]
     Active Substance: OMEPRAZOLE
  3. ACETAMINOPHEN\HYDROCODONE [Concomitant]
     Active Substance: ACETAMINOPHEN\HYDROCODONE
     Dosage: UNK
  4. ALBUTEROL SULFATE [Concomitant]
     Active Substance: ALBUTEROL SULFATE
  5. CLOBETASOL [Concomitant]
     Active Substance: CLOBETASOL
  6. PREDNISONE [Concomitant]
     Active Substance: PREDNISONE
  7. NEOMYCIN/POLYMYXIN/HYDROCORTISONE AIDAREX [Concomitant]
  8. SINGULAIR [Concomitant]
     Active Substance: MONTELUKAST SODIUM
  9. PLAQUENIL [Concomitant]
     Active Substance: HYDROXYCHLOROQUINE SULFATE
  10. AMITIZA [Concomitant]
     Active Substance: LUBIPROSTONE
  11. METOPROLOL SUCCINATE [Concomitant]
     Active Substance: METOPROLOL SUCCINATE
  12. DOXYCYCLINE HYCLATE [Concomitant]
     Active Substance: DOXYCYCLINE HYCLATE
  13. ONFI [Concomitant]
     Active Substance: CLOBAZAM
  14. GABITRIL [Concomitant]
     Active Substance: TIAGABINE HYDROCHLORIDE
  15. VIMPAT [Concomitant]
     Active Substance: LACOSAMIDE
  16. CUREL ADVANCED CERAMIDE THERAPY [Concomitant]
     Active Substance: PETROLATUM
  17. COPPERTONE [OXYBENZONE;PADIMATE] [Concomitant]
  18. LACTULOSE [Concomitant]
     Active Substance: LACTULOSE
     Dosage: FORMULATION: SOLUTION
  19. ACETAMINOPHEN\HYDROCODONE [Concomitant]
     Active Substance: ACETAMINOPHEN\HYDROCODONE
  20. CLOBETASOL [Concomitant]
     Active Substance: CLOBETASOL
  21. OPZELURA [Concomitant]
     Active Substance: RUXOLITINIB PHOSPHATE

REACTIONS (5)
  - Pain [Unknown]
  - Discomfort [Unknown]
  - Swelling [Not Recovered/Not Resolved]
  - Injury [Not Recovered/Not Resolved]
  - Balance disorder [Not Recovered/Not Resolved]
